FAERS Safety Report 19498053 (Version 4)
Quarter: 2021Q3

REPORT INFORMATION
  Report Type: Report from Study
  Country: CN (occurrence: CN)
  Receive Date: 20210706
  Receipt Date: 20210927
  Transmission Date: 20211014
  Serious: Yes (Hospitalization)
  Sender: FDA-Public Use
  Company Number: CN-ROCHE-2857983

PATIENT
  Age: 12 Year
  Sex: Female
  Weight: 31 kg

DRUGS (36)
  1. GLUCOSE [Concomitant]
     Active Substance: DEXTROSE
     Dates: start: 20191228, end: 20200101
  2. ETAMSYLATE [Concomitant]
     Active Substance: ETHAMSYLATE
     Dates: start: 20191228
  3. GLUCOSE [Concomitant]
     Active Substance: DEXTROSE
     Dates: start: 20191228, end: 20191231
  4. POTASSIUM CHLORIDE. [Concomitant]
     Active Substance: POTASSIUM CHLORIDE
     Dates: start: 20191229, end: 20200101
  5. MOTILIUM [Concomitant]
     Active Substance: DOMPERIDONE
     Dates: start: 20191227, end: 20191227
  6. DEXAMETHASONE SODIUM PHOSPHATE. [Concomitant]
     Active Substance: DEXAMETHASONE SODIUM PHOSPHATE
     Dates: start: 20191228, end: 20191228
  7. GLUCOSE [Concomitant]
     Active Substance: DEXTROSE
     Dates: start: 20210623, end: 20210623
  8. GLUCOSE [Concomitant]
     Active Substance: DEXTROSE
     Dates: start: 20210624, end: 20210624
  9. SODIUM BICARBONATE. [Concomitant]
     Active Substance: SODIUM BICARBONATE
     Dates: start: 20210624, end: 20210624
  10. POTASSIUM CHLORIDE. [Concomitant]
     Active Substance: POTASSIUM CHLORIDE
     Dates: start: 20210624, end: 20210624
  11. BUDESONIDE. [Concomitant]
     Active Substance: BUDESONIDE
     Dates: start: 20191229, end: 20200101
  12. VITAMIN B6 [Concomitant]
     Active Substance: PYRIDOXINE HYDROCHLORIDE
     Dates: start: 20210702, end: 20210703
  13. SODIUM BICARBONATE. [Concomitant]
     Active Substance: SODIUM BICARBONATE
     Dates: start: 20210702, end: 20210703
  14. SODIUM BICARBONATE. [Concomitant]
     Active Substance: SODIUM BICARBONATE
     Dates: start: 20210623, end: 20210623
  15. CEFIXIME. [Concomitant]
     Active Substance: CEFIXIME
     Dates: start: 20191227, end: 20191227
  16. CEFTAZIDIME PENTAHYDRATE [Concomitant]
     Active Substance: CEFTAZIDIME
     Dates: start: 20191229, end: 20200101
  17. RISDIPLAM. [Suspect]
     Active Substance: RISDIPLAM
     Indication: SPINAL MUSCULAR ATROPHY
     Dosage: ON 23/JUN/2021, THE PATIENT RECEIVED THE MOST RECENT DOSE OF STUDY DRUG PRIOR TO THE SAE
     Route: 048
  18. VITAMIN C [Concomitant]
     Active Substance: ASCORBIC ACID
     Dates: start: 20210623, end: 20210623
  19. VITAMIN C [Concomitant]
     Active Substance: ASCORBIC ACID
     Dates: start: 20210702, end: 20210703
  20. VITAMIN B6 [Concomitant]
     Active Substance: PYRIDOXINE HYDROCHLORIDE
     Dosage: 100 ML
     Dates: start: 20210624, end: 20210624
  21. SODIUM BICARBONATE. [Concomitant]
     Active Substance: SODIUM BICARBONATE
     Dates: start: 20210703, end: 20210704
  22. SODIUM CHLORIDE. [Concomitant]
     Active Substance: SODIUM CHLORIDE
     Dates: start: 20210624, end: 20210628
  23. POTASSIUM CHLORIDE. [Concomitant]
     Active Substance: POTASSIUM CHLORIDE
     Dates: start: 20191228, end: 20191231
  24. SODIUM CHLORIDE. [Concomitant]
     Active Substance: SODIUM CHLORIDE
     Dates: start: 20191228, end: 20191231
  25. CEFOXITIN SODIUM [Concomitant]
     Active Substance: CEFOXITIN SODIUM
     Dates: start: 20210702, end: 20210702
  26. GLUCOSE [Concomitant]
     Active Substance: DEXTROSE
     Dates: start: 20191228, end: 20191230
  27. VITAMIN C [Concomitant]
     Active Substance: ASCORBIC ACID
     Dates: start: 20191228, end: 20191230
  28. VITAMIN B6 [Concomitant]
     Active Substance: PYRIDOXINE HYDROCHLORIDE
     Dosage: 100 ML
     Dates: start: 20210623, end: 20210623
  29. SODIUM CHLORIDE. [Concomitant]
     Active Substance: SODIUM CHLORIDE
     Dates: start: 20191228, end: 20191230
  30. SODIUM CHLORIDE. [Concomitant]
     Active Substance: SODIUM CHLORIDE
     Dates: start: 20191229, end: 20200101
  31. POTASSIUM CHLORIDE. [Concomitant]
     Active Substance: POTASSIUM CHLORIDE
     Dates: start: 20210702, end: 20210710
  32. BLINDED RISDIPLAM [Suspect]
     Active Substance: RISDIPLAM
     Indication: SPINAL MUSCULAR ATROPHY
     Dosage: DATE OF LAST DOSE PRIOR TO SAE ONSET: 27/DEC/2019, 02/AUG/2020 AND 01/JUL/2021?DATE OF LAST DOSE OF
     Route: 048
     Dates: start: 20180628
  33. SODIUM BICARBONATE. [Concomitant]
     Active Substance: SODIUM BICARBONATE
     Dates: start: 20191229, end: 20200101
  34. SODIUM CHLORIDE. [Concomitant]
     Active Substance: SODIUM CHLORIDE
     Dosage: 50 ML
     Dates: start: 20210624, end: 20210624
  35. SODIUM CHLORIDE. [Concomitant]
     Active Substance: SODIUM CHLORIDE
     Dates: start: 20210624, end: 20210624
  36. OMEPRAZOLE SODIUM [Concomitant]
     Active Substance: OMEPRAZOLE SODIUM
     Dates: start: 20210705, end: 20210710

REACTIONS (7)
  - Gastrointestinal haemorrhage [Recovered/Resolved]
  - Gastritis [Recovered/Resolved]
  - Tonsillitis [Recovered/Resolved]
  - Feeding disorder [Not Recovered/Not Resolved]
  - Hypoglycaemia [Recovered/Resolved]
  - Gastritis [Recovered/Resolved]
  - Upper respiratory tract infection [Recovered/Resolved]

NARRATIVE: CASE EVENT DATE: 20191226
